FAERS Safety Report 20064054 (Version 1)
Quarter: 2021Q4

REPORT INFORMATION
  Report Type: Spontaneous
  Country: PT (occurrence: None)
  Receive Date: 20211112
  Receipt Date: 20211112
  Transmission Date: 20220303
  Serious: Yes (Other)
  Sender: FDA-Public Use
  Company Number: 2021A798489

PATIENT
  Age: 72 Year
  Sex: Female

DRUGS (2)
  1. QUETIAPINE [Suspect]
     Active Substance: QUETIAPINE
     Indication: Psychomotor hyperactivity
     Dosage: UNK
     Route: 048
  2. HALOPERIDOL [Suspect]
     Active Substance: HALOPERIDOL
     Indication: Product used for unknown indication
     Dosage: UNK
     Route: 065

REACTIONS (2)
  - Neuroleptic malignant syndrome [Recovered/Resolved]
  - Condition aggravated [Recovered/Resolved]
